FAERS Safety Report 25697825 (Version 1)
Quarter: 2025Q3

REPORT INFORMATION
  Report Type: Spontaneous
  Country: US (occurrence: US)
  Receive Date: 20250819
  Receipt Date: 20250819
  Transmission Date: 20251021
  Serious: Yes (Other)
  Sender: AMGEN
  Company Number: US-AMGEN-USASP2025161702

PATIENT

DRUGS (9)
  1. TRASTUZUMAB [Suspect]
     Active Substance: TRASTUZUMAB
     Indication: HER2 positive breast cancer
     Route: 065
  2. TRASTUZUMAB [Suspect]
     Active Substance: TRASTUZUMAB
     Indication: Metastases to central nervous system
  3. PERTUZUMAB [Concomitant]
     Active Substance: PERTUZUMAB
     Indication: HER2 positive breast cancer
     Route: 065
  4. PERTUZUMAB [Concomitant]
     Active Substance: PERTUZUMAB
     Indication: Metastases to central nervous system
  5. TAXOL [Concomitant]
     Active Substance: PACLITAXEL
     Indication: HER2 positive breast cancer
  6. TUCATINIB [Concomitant]
     Active Substance: TUCATINIB
     Indication: HER2 positive breast cancer
  7. TUCATINIB [Concomitant]
     Active Substance: TUCATINIB
     Indication: Metastases to central nervous system
  8. CAPECITABINE [Concomitant]
     Active Substance: CAPECITABINE
     Indication: HER2 positive breast cancer
  9. CAPECITABINE [Concomitant]
     Active Substance: CAPECITABINE
     Indication: Metastases to central nervous system

REACTIONS (2)
  - Radiation necrosis [Unknown]
  - Off label use [Unknown]
